FAERS Safety Report 21809937 (Version 1)
Quarter: 2023Q1

REPORT INFORMATION
  Report Type: Spontaneous
  Country: IT (occurrence: IT)
  Receive Date: 20230103
  Receipt Date: 20230103
  Transmission Date: 20230417
  Serious: Yes (Hospitalization)
  Sender: FDA-Public Use
  Company Number: IT-AUROBINDO-AUR-APL-2012-03263

PATIENT
  Age: 25 Year
  Sex: Male

DRUGS (3)
  1. ALPRAZOLAM [Suspect]
     Active Substance: ALPRAZOLAM
     Indication: Intentional self-injury
     Dosage: 15 DF,UNK,,7.5 MG/TOTAL
     Route: 048
     Dates: start: 20120517, end: 20120517
  2. SERTRALINE HYDROCHLORIDE [Suspect]
     Active Substance: SERTRALINE HYDROCHLORIDE
     Indication: Product used for unknown indication
     Dosage: 60 DF,UNK,,6000 MG/TOTAL
     Route: 048
     Dates: start: 20120517, end: 20120517
  3. ZOLPIDEM TARTRATE [Suspect]
     Active Substance: ZOLPIDEM TARTRATE
     Indication: Intentional self-injury
     Dosage: UNK UNK,UNK,,50 MG/TOTAL
     Route: 048
     Dates: start: 20120517, end: 20120517

REACTIONS (3)
  - Intentional self-injury [Not Recovered/Not Resolved]
  - Vomiting [Not Recovered/Not Resolved]
  - Intentional overdose [Not Recovered/Not Resolved]

NARRATIVE: CASE EVENT DATE: 20120518
